FAERS Safety Report 8876447 (Version 1)
Quarter: 2012Q4

REPORT INFORMATION
  Report Type: 
  Country: US (occurrence: US)
  Receive Date: 20121023
  Receipt Date: 20121023
  Transmission Date: 20130627
  Serious: Yes (Hospitalization)
  Sender: FDA-Public Use
  Company Number: US-ASTELLAS-2011US003507

PATIENT

DRUGS (4)
  1. PROGRAF [Suspect]
     Indication: STEM CELL TRANSPLANT
     Dosage: 1 mg, UID/QD
     Route: 048
     Dates: start: 20100511
  2. PROTOPIC [Concomitant]
     Indication: ECZEMA EYELIDS
     Dosage: UNK g, UID/QD
     Route: 061
  3. RAPAMUNE [Concomitant]
     Indication: PRODUCT USED FOR UNKNOWN INDICATION
     Dosage: 1 mg, UID/QD
     Route: 048
  4. LEVETIRACETAM [Concomitant]
     Indication: PRODUCT USED FOR UNKNOWN INDICATION
     Dosage: 250 mg, UID/QD
     Route: 048

REACTIONS (2)
  - Off label use [Unknown]
  - Dehydration [Recovered/Resolved]
